FAERS Safety Report 5803281-2 (Version None)
Quarter: 2008Q3

REPORT INFORMATION
  Report Type: 
  Country: None (occurrence: None)
  Receive Date: 20080708
  Receipt Date: 20080702
  Transmission Date: 20090109
  Serious: Yes (Hospitalization)
  Sender: FDA-Public Use
  Company Number: A0735818A

PATIENT
  Age: 45 Year
  Sex: Female

DRUGS (2)
  1. LAMICTAL [Suspect]
     Indication: BIPOLAR DISORDER
     Dosage: 150MG PER DAY
     Route: 048
     Dates: start: 20070901, end: 20080628
  2. GEODON [Concomitant]

REACTIONS (8)
  - ANXIETY [None]
  - GAIT DISTURBANCE [None]
  - MOTOR DYSFUNCTION [None]
  - MULTIPLE SCLEROSIS [None]
  - PARALYSIS [None]
  - SPEECH DISORDER [None]
  - TREMOR [None]
  - VISION BLURRED [None]
